FAERS Safety Report 12465103 (Version 1)
Quarter: 2016Q2

REPORT INFORMATION
  Report Type: Spontaneous
  Country: US (occurrence: US)
  Receive Date: 20160614
  Receipt Date: 20160614
  Transmission Date: 20160815
  Serious: No
  Sender: FDA-Public Use
  Company Number: US-TRIS PHARMA, INC.-1053787

PATIENT
  Age: 69 Year
  Sex: Female
  Weight: 58.64 kg

DRUGS (1)
  1. DEXTROMETHORPHAN POLISTIREX ER OS [Suspect]
     Active Substance: DEXTROMETHORPHAN HYDROBROMIDE
     Indication: ANTITUSSIVE THERAPY
     Route: 048

REACTIONS (4)
  - Drug ineffective [None]
  - Asthenia [None]
  - Dizziness [None]
  - Off label use [None]

NARRATIVE: CASE EVENT DATE: 20160524
